FAERS Safety Report 25298904 (Version 4)
Quarter: 2025Q3

REPORT INFORMATION
  Report Type: Report from Study
  Country: US (occurrence: US)
  Receive Date: 20250512
  Receipt Date: 20250722
  Transmission Date: 20251021
  Serious: Yes (Hospitalization, Other)
  Sender: INSMED
  Company Number: US-INSMED, INC.-2024-05140-US

PATIENT
  Age: 67 Year
  Sex: Male

DRUGS (6)
  1. ARIKAYCE [Suspect]
     Active Substance: AMIKACIN
     Indication: Mycobacterium avium complex infection
     Dosage: 590 MILLIGRAM, QD
     Route: 055
     Dates: start: 202412, end: 202412
  2. ARIKAYCE [Suspect]
     Active Substance: AMIKACIN
     Dosage: UNK, QD (HALF DOSE)
     Route: 055
     Dates: start: 202412, end: 202412
  3. ARIKAYCE [Suspect]
     Active Substance: AMIKACIN
     Dosage: UNK, QD (3/4 DOSE)
     Route: 055
     Dates: start: 202412, end: 202412
  4. ARIKAYCE [Suspect]
     Active Substance: AMIKACIN
     Dosage: 590 MILLIGRAM, QD
     Route: 055
     Dates: start: 202412, end: 202502
  5. ARIKAYCE [Suspect]
     Active Substance: AMIKACIN
     Dosage: 590 MILLIGRAM, QD
     Route: 055
     Dates: start: 202506
  6. ELIQUIS [Concomitant]
     Active Substance: APIXABAN
     Indication: Product used for unknown indication
     Route: 065

REACTIONS (18)
  - Hospitalisation [Unknown]
  - Pulmonary embolism [Unknown]
  - Pneumonia [Unknown]
  - Weight decreased [Unknown]
  - Chronic obstructive pulmonary disease [Not Recovered/Not Resolved]
  - Influenza like illness [Unknown]
  - Temperature intolerance [Unknown]
  - Peripheral swelling [Unknown]
  - Viral infection [Unknown]
  - Musculoskeletal discomfort [Not Recovered/Not Resolved]
  - Sputum increased [Unknown]
  - Asthenia [Not Recovered/Not Resolved]
  - Ill-defined disorder [Unknown]
  - Haemoptysis [Not Recovered/Not Resolved]
  - Dyspnoea [Unknown]
  - Off label use [Unknown]
  - Therapy interrupted [Unknown]
  - Product dose omission issue [Unknown]

NARRATIVE: CASE EVENT DATE: 20241201
